FAERS Safety Report 21572605 (Version 2)
Quarter: 2022Q4

REPORT INFORMATION
  Report Type: Report from Study
  Country: KR (occurrence: KR)
  Receive Date: 20221109
  Receipt Date: 20221216
  Transmission Date: 20230113
  Serious: Yes (Hospitalization, Other)
  Sender: FDA-Public Use
  Company Number: KR-JNJFOC-20210923127

PATIENT
  Age: 78 Year
  Sex: Female
  Weight: 59.6 kg

DRUGS (41)
  1. TECLISTAMAB [Suspect]
     Active Substance: TECLISTAMAB
     Indication: Plasma cell myeloma refractory
     Dosage: LATEST DOSE PRIOR TO EVENT 20-OCT-2021
     Route: 058
     Dates: start: 20210723
  2. TECLISTAMAB [Suspect]
     Active Substance: TECLISTAMAB
     Dosage: STEP-UP DOSE 1
     Route: 058
     Dates: start: 20211015, end: 20211015
  3. TECLISTAMAB [Suspect]
     Active Substance: TECLISTAMAB
     Dosage: STEP-UP DOSE 2
     Route: 058
     Dates: start: 20211018, end: 20211018
  4. TECLISTAMAB [Suspect]
     Active Substance: TECLISTAMAB
     Dosage: CYCLE 3
     Route: 058
     Dates: start: 20211020
  5. JNJ-64407564 [Suspect]
     Active Substance: JNJ-64407564
     Indication: Plasma cell myeloma refractory
     Dosage: LATEST DOSE PRIOR TO EVENT 20-OCT-2021
     Route: 058
     Dates: start: 20210723
  6. JNJ-64407564 [Suspect]
     Active Substance: JNJ-64407564
     Dosage: STEP-UP DOSE 1
     Route: 058
     Dates: start: 20211015, end: 20211015
  7. JNJ-64407564 [Suspect]
     Active Substance: JNJ-64407564
     Dosage: STEP-UP DOSE 2
     Route: 058
     Dates: start: 20211018, end: 20211018
  8. JNJ-64407564 [Suspect]
     Active Substance: JNJ-64407564
     Dosage: CYCLE 3
     Route: 058
     Dates: start: 20211020
  9. AMLODIPINE [Concomitant]
     Active Substance: AMLODIPINE BESYLATE
     Indication: Hypertension
     Route: 048
     Dates: start: 20210725
  10. TAMSULOSIN [Concomitant]
     Active Substance: TAMSULOSIN
     Indication: Urinary incontinence
     Route: 048
     Dates: start: 20210726
  11. MIRTAZAPINE [Concomitant]
     Active Substance: MIRTAZAPINE
     Indication: Depression
     Route: 048
     Dates: start: 20210902, end: 20210909
  12. ALPRAZOLAM [Concomitant]
     Active Substance: ALPRAZOLAM
     Indication: Depression
     Route: 048
     Dates: start: 20210902, end: 20210909
  13. CHLORPHENIRAMINE [Concomitant]
     Active Substance: CHLORPHENIRAMINE
     Indication: Hand dermatitis
     Route: 048
     Dates: start: 20210909
  14. HYDROCORTISONE [Concomitant]
     Active Substance: HYDROCORTISONE
     Indication: Hand dermatitis
     Route: 062
     Dates: start: 20210909, end: 20211005
  15. ULTRACET [Concomitant]
     Active Substance: ACETAMINOPHEN\TRAMADOL HYDROCHLORIDE
     Indication: Musculoskeletal chest pain
     Route: 048
  16. MAGNESIUM OXIDE [Concomitant]
     Active Substance: MAGNESIUM OXIDE
     Indication: Constipation
     Route: 048
  17. SIMVASTATIN [Concomitant]
     Active Substance: SIMVASTATIN
     Indication: Hyperlipidaemia
     Route: 048
  18. APIXABAN [Concomitant]
     Active Substance: APIXABAN
     Indication: Deep vein thrombosis
     Route: 048
  19. CHOLINE ALFOSCERATE [Concomitant]
     Active Substance: CHOLINE ALFOSCERATE
     Indication: Neuropathy peripheral
     Route: 048
  20. PREGABALIN [Concomitant]
     Active Substance: PREGABALIN
     Indication: Neuropathy peripheral
     Route: 048
  21. LACTULOSE [Concomitant]
     Active Substance: LACTULOSE
     Indication: Constipation
     Route: 048
  22. MORPHINE HYDROCHLORIDE [Concomitant]
     Active Substance: MORPHINE HYDROCHLORIDE
     Indication: Cancer pain
     Route: 042
     Dates: start: 20210915, end: 20211022
  23. TRAMADOL [Concomitant]
     Active Substance: TRAMADOL
     Indication: Cancer pain
     Route: 048
     Dates: start: 20210916, end: 20211022
  24. CHLORHEXIDINE [Concomitant]
     Active Substance: CHLORHEXIDINE
     Indication: Prophylaxis
     Route: 048
     Dates: start: 20210920, end: 20211015
  25. TRESTAN [CYANOCOBALAMIN] [Concomitant]
     Indication: Prophylaxis
     Route: 048
     Dates: start: 20211004
  26. TAMIPOOL [VITAMINS NOS] [Concomitant]
     Indication: Malnutrition
     Route: 042
     Dates: start: 20211004, end: 20211021
  27. TAMIPOOL [VITAMINS NOS] [Concomitant]
     Route: 042
     Dates: start: 20211021
  28. METOCLOPRAMIDE [Concomitant]
     Active Substance: METOCLOPRAMIDE
     Indication: Prophylaxis of nausea and vomiting
     Route: 042
     Dates: start: 20211004, end: 20211022
  29. PERI OLIMEL N4E [Concomitant]
     Indication: Malnutrition
     Route: 042
     Dates: start: 20211004, end: 20211022
  30. ONDANSETRON [Concomitant]
     Active Substance: ONDANSETRON
     Indication: Prophylaxis of nausea and vomiting
     Route: 042
     Dates: start: 20211007, end: 20211017
  31. FILGRASTIM [Concomitant]
     Active Substance: FILGRASTIM
     Indication: Neutrophil count decreased
     Route: 042
     Dates: start: 20211011, end: 20211011
  32. FILGRASTIM [Concomitant]
     Active Substance: FILGRASTIM
     Route: 042
     Dates: start: 20211014, end: 20211014
  33. FILGRASTIM [Concomitant]
     Active Substance: FILGRASTIM
     Route: 042
     Dates: start: 20211018, end: 20211018
  34. FILGRASTIM [Concomitant]
     Active Substance: FILGRASTIM
     Route: 042
     Dates: start: 20210923, end: 20210923
  35. FILGRASTIM [Concomitant]
     Active Substance: FILGRASTIM
     Route: 042
     Dates: start: 20210927, end: 20211002
  36. FILGRASTIM [Concomitant]
     Active Substance: FILGRASTIM
     Route: 042
     Dates: start: 20211007, end: 20211007
  37. POTASSIUM CHLORIDE [Concomitant]
     Active Substance: POTASSIUM CHLORIDE
     Indication: Prophylaxis
     Dates: start: 20210914, end: 20210929
  38. MEGESTROL [Concomitant]
     Active Substance: MEGESTROL
     Indication: Malnutrition
     Route: 048
     Dates: start: 20210922, end: 20211003
  39. AMINO ACIDS\DEXTROSE\ELECTROLYTES NOS\SOYBEAN OIL\VITAMINS [Concomitant]
     Active Substance: AMINO ACIDS\DEXTROSE\ELECTROLYTES NOS\SOYBEAN OIL\VITAMINS
     Indication: Malnutrition
     Route: 042
     Dates: start: 20210922, end: 20211003
  40. PHOSTEN [Concomitant]
     Indication: Prophylaxis
     Dates: start: 20211005, end: 20211007
  41. FAMOTIDINE [Concomitant]
     Active Substance: FAMOTIDINE
     Indication: Prophylaxis against gastrointestinal ulcer
     Route: 042
     Dates: start: 20211008, end: 20211008

REACTIONS (2)
  - Pneumonia [Not Recovered/Not Resolved]
  - Hypoglycaemia [Recovered/Resolved]

NARRATIVE: CASE EVENT DATE: 20210912
